FAERS Safety Report 24777430 (Version 1)
Quarter: 2024Q4

REPORT INFORMATION
  Report Type: Spontaneous
  Country: US (occurrence: None)
  Receive Date: 20241224
  Receipt Date: 20241224
  Transmission Date: 20250115
  Serious: No
  Sender: Public
  Company Number: None

PATIENT
  Age: 56 Year
  Sex: Female
  Weight: 83.7 kg

DRUGS (1)
  1. TEPEZZA [Suspect]
     Active Substance: TEPROTUMUMAB-TRBW
     Indication: Toxic goitre
     Dosage: 840 MG INTRAVENOUS
     Route: 042
     Dates: start: 20241224, end: 20241224

REACTIONS (2)
  - Headache [None]
  - Pruritus [None]

NARRATIVE: CASE EVENT DATE: 20241224
